FAERS Safety Report 6692072-9 (Version None)
Quarter: 2010Q2

REPORT INFORMATION
  Report Type: 
  Country: None (occurrence: None)
  Receive Date: 20100422
  Receipt Date: 20100415
  Transmission Date: 20101027
  Serious: Yes (Hospitalization)
  Sender: FDA-Public Use
  Company Number: FR-BRISTOL-MYERS SQUIBB COMPANY-14994537

PATIENT
  Age: 39 Year
  Sex: Male
  Weight: 78 kg

DRUGS (3)
  1. SUSTIVA [Suspect]
     Route: 048
     Dates: start: 20070101, end: 20100201
  2. ATRIPLA [Suspect]
     Dosage: INTERRUPTED ON FEB2010,RESTRTED ON MAR2010 1DF:1TABS
     Route: 048
     Dates: start: 20091101
  3. IMOVANE [Concomitant]
     Indication: SLEEP DISORDER
     Dosage: 1DF:1TABS
     Route: 048
     Dates: start: 20070101

REACTIONS (4)
  - FALL [None]
  - LOSS OF CONSCIOUSNESS [None]
  - MALAISE [None]
  - THERMAL BURN [None]
